FAERS Safety Report 24029510 (Version 1)
Quarter: 2024Q2

REPORT INFORMATION
  Report Type: Spontaneous
  Country: GR (occurrence: GR)
  Receive Date: 20240628
  Receipt Date: 20240628
  Transmission Date: 20240716
  Serious: Yes (Other)
  Sender: FDA-Public Use
  Company Number: GR-ELI_LILLY_AND_COMPANY-GR202406012389

PATIENT
  Age: 48 Year
  Sex: Female

DRUGS (2)
  1. TRULICITY [Suspect]
     Active Substance: DULAGLUTIDE
     Indication: Metabolic disorder
     Dosage: 1.5 MG, WEEKLY (1/W)
     Route: 058
     Dates: start: 2022, end: 202406
  2. LIPITOR [Concomitant]
     Active Substance: ATORVASTATIN CALCIUM
     Indication: Hyperlipidaemia
     Dosage: UNK

REACTIONS (3)
  - Uterine polyp [Not Recovered/Not Resolved]
  - Uterine cyst [Not Recovered/Not Resolved]
  - Off label use [Unknown]

NARRATIVE: CASE EVENT DATE: 20220101
